FAERS Safety Report 9779456 (Version 1)
Quarter: 2013Q4

REPORT INFORMATION
  Report Type: Spontaneous
  Country: IT (occurrence: IT)
  Receive Date: 20131223
  Receipt Date: 20131223
  Transmission Date: 20140711
  Serious: Yes (Other)
  Sender: FDA-Public Use
  Company Number: IT-ACTAVIS-2013-22932

PATIENT
  Age: 77 Year
  Sex: Female

DRUGS (7)
  1. PARACETAMOL (UNKNOWN) [Suspect]
     Indication: PYREXIA
     Dosage: 1 G, PRN
     Route: 048
     Dates: start: 20130817, end: 20130818
  2. TAVOR                              /00273201/ [Concomitant]
     Indication: PRODUCT USED FOR UNKNOWN INDICATION
     Dosage: 1 MG, UNK
     Route: 065
  3. TEGRETOL [Concomitant]
     Indication: GRAND MAL CONVULSION
     Dosage: 400 MG, UNK
     Route: 065
  4. PANTORC [Concomitant]
     Indication: PRODUCT USED FOR UNKNOWN INDICATION
     Dosage: 40 MG, UNK
     Route: 065
  5. COSOPT [Concomitant]
     Indication: GLAUCOMA
     Dosage: 2%+0.5% , UNK
     Route: 047
  6. VERTISERC [Concomitant]
     Indication: PRODUCT USED FOR UNKNOWN INDICATION
     Dosage: 16 MG, UNK
     Route: 065
  7. TAREG [Concomitant]
     Indication: HYPERTENSION
     Dosage: 80 MG, UNK
     Route: 065

REACTIONS (2)
  - Erythema [Recovered/Resolved]
  - Pruritus generalised [Recovered/Resolved]
